FAERS Safety Report 8399830-3 (Version None)
Quarter: 2012Q2

REPORT INFORMATION
  Report Type: 
  Country: None (occurrence: None)
  Receive Date: 20120531
  Receipt Date: 20120525
  Transmission Date: 20120825
  Serious: Yes (Hospitalization, Congenital Anomaly, Other)
  Sender: FDA-Public Use
  Company Number: US-PFIZER INC-2012128616

PATIENT
  Sex: Male
  Weight: 3 kg

DRUGS (11)
  1. LAMICTAL [Concomitant]
     Indication: SLEEP DISORDER
     Dosage: UNK
     Route: 064
  2. CEFAZOLIN [Concomitant]
     Dosage: UNK
     Route: 064
  3. MULTI-VITAMINS [Concomitant]
     Dosage: UNK
     Route: 064
  4. ZOLOFT [Suspect]
     Indication: BIPOLAR DISORDER
  5. MACRODANTIN [Concomitant]
     Dosage: UNK
     Route: 064
  6. PERCOCET [Concomitant]
     Dosage: UNK
     Route: 064
  7. ZOLOFT [Suspect]
     Indication: DEPRESSION
  8. TRAZODONE [Concomitant]
     Indication: SLEEP DISORDER
     Dosage: UNK
     Route: 064
  9. KEFLEX [Concomitant]
     Dosage: UNK
     Route: 064
  10. ZOLOFT [Suspect]
     Indication: ANXIETY
     Dosage: UNK
     Route: 064
     Dates: start: 20060711
  11. ALKA-SELTZER GOLD [Concomitant]
     Dosage: UNK
     Route: 064

REACTIONS (6)
  - PREMATURE BABY [None]
  - CONGENITAL HYDRONEPHROSIS [None]
  - MATERNAL EXPOSURE TIMING UNSPECIFIED [None]
  - JAUNDICE NEONATAL [None]
  - GASTROSCHISIS [None]
  - NEONATAL RESPIRATORY DISTRESS SYNDROME [None]
